FAERS Safety Report 4759161-7 (Version None)
Quarter: 2005Q3

REPORT INFORMATION
  Report Type: 
  Country: None (occurrence: None)
  Receive Date: 20050831
  Receipt Date: 20050824
  Transmission Date: 20060218
  Serious: Yes (Death, Congenital Anomaly)
  Sender: FDA-Public Use
  Company Number: S05-FRA-00273-02

PATIENT
  Age: 1 Day
  Sex: Male
  Weight: 1.765 kg

DRUGS (4)
  1. CITALOPRAM HYDROBROMIDE [Suspect]
     Indication: DEPRESSION
     Dosage: 10 MG QD TRANSPLACENTAL
     Route: 064
  2. CHLORPROMAZINE HCL [Suspect]
     Dosage: 0.25 UNITS QD TRANSPLACENTAL
     Route: 064
  3. CLONAZEPAM [Suspect]
     Dosage: 0.25 UNK QD TRANSPLACENTAL
     Route: 064
  4. OMEPRAZOLE [Concomitant]

REACTIONS (31)
  - AKINESIA [None]
  - AMNIOCENTESIS ABNORMAL [None]
  - APGAR SCORE LOW [None]
  - AREFLEXIA [None]
  - BLOOD PH DECREASED [None]
  - CAESAREAN SECTION [None]
  - CAMPTODACTYLY CONGENITAL [None]
  - CEREBRAL HAEMORRHAGE [None]
  - CHOLESTASIS [None]
  - CONGENITAL MULTIPLEX ARTHROGRYPOSIS [None]
  - CONGENITAL NEUROLOGICAL DISORDER [None]
  - CONGENITAL ORAL MALFORMATION [None]
  - CONGENITAL PULMONARY HYPERTENSION [None]
  - DEATH NEONATAL [None]
  - DEFORMITY THORAX [None]
  - DRUG EXPOSURE DURING PREGNANCY [None]
  - FEEDING TUBE COMPLICATION [None]
  - GASTROINTESTINAL MOTILITY DISORDER [None]
  - HAEMOGLOBIN INCREASED [None]
  - HAND DEFORMITY [None]
  - HIP DYSPLASIA [None]
  - HYPOKINESIA NEONATAL [None]
  - IMMOBILE [None]
  - ISCHAEMIA [None]
  - JOINT HYPEREXTENSION [None]
  - MYDRIASIS [None]
  - MYOPATHY [None]
  - NEONATAL HYPOXIA [None]
  - OBSTRUCTION [None]
  - POLYHYDRAMNIOS [None]
  - PREMATURE BABY [None]
